FAERS Safety Report 6615921-9 (Version None)
Quarter: 2010Q1

REPORT INFORMATION
  Report Type: 
  Country: None (occurrence: None)
  Receive Date: 20100305
  Receipt Date: 20100223
  Transmission Date: 20100710
  Serious: Yes (Death)
  Sender: FDA-Public Use
  Company Number: GXKR2010GB02219

PATIENT
  Age: 60 Year
  Sex: Female

DRUGS (4)
  1. EPIRUBICIN (NGX) [Suspect]
     Indication: BREAST CANCER
     Dosage: 6 CYCLES (98 MG); CUMULATIVE DOSE: 360 MG/M2
     Route: 065
  2. FLUOROURACIL [Suspect]
     Indication: BREAST CANCER
     Dosage: 6 CYCLES (975 MG)
     Route: 065
  3. CYCLOPHOSPHAMIDE [Suspect]
     Indication: BREAST CANCER
     Dosage: 6 CYCLES (980 MG)
     Route: 065
  4. RADIOTHERAPY [Concomitant]
     Indication: BREAST CANCER

REACTIONS (2)
  - ACUTE PROMYELOCYTIC LEUKAEMIA [None]
  - APPENDICITIS [None]
